FAERS Safety Report 5828419-2 (Version None)
Quarter: 2008Q3

REPORT INFORMATION
  Report Type: 
  Country: None (occurrence: None)
  Receive Date: 20080729
  Receipt Date: 20080715
  Transmission Date: 20090109
  Serious: Yes (Hospitalization)
  Sender: FDA-Public Use
  Company Number: DSA_32159_2008

PATIENT
  Age: 66 Year
  Sex: Female

DRUGS (1)
  1. LORAZEPAM [Suspect]
     Indication: FAMILY STRESS
     Dosage: (1 MG AT NOON AND IN THE EVENING OR 2 MG IN THE EVENING SUBLINGUAL)
     Route: 060
     Dates: start: 20000101

REACTIONS (3)
  - ALOPECIA [None]
  - BREAST CANCER FEMALE [None]
  - HOT FLUSH [None]
